FAERS Safety Report 6030936-X (Version None)
Quarter: 2009Q1

REPORT INFORMATION
  Report Type: 
  Country: None (occurrence: None)
  Receive Date: 20090106
  Receipt Date: 20081223
  Transmission Date: 20090719
  Serious: Yes (Hospitalization)
  Sender: FDA-Public Use
  Company Number: CIO08021376

PATIENT
  Sex: Male

DRUGS (1)
  1. NYQUIL COLD/FLU, PSEUDOEPHEDERINE FREE (PARACETAMOL 325MG, DEXTROMETHO [Suspect]
     Dosage: 1 LIQCAP, 1 ONLY FOR 1 DAY, ORAL
     Route: 048
     Dates: start: 20081216, end: 20081216

REACTIONS (4)
  - BLOOD PRESSURE DECREASED [None]
  - LOSS OF CONSCIOUSNESS [None]
  - SOMNOLENCE [None]
  - VASODILATATION [None]
